FAERS Safety Report 5135533-6 (Version None)
Quarter: 2006Q4

REPORT INFORMATION
  Report Type: 
  Country: None (occurrence: None)
  Receive Date: 20061024
  Receipt Date: 20061024
  Transmission Date: 20070319
  Serious: Yes (Hospitalization)
  Sender: FDA-Public Use
  Company Number: None

PATIENT
  Age: 37 Year
  Sex: Male

DRUGS (5)
  1. CLOZAPINE 150MG MYLAN [Suspect]
     Indication: BIPOLAR DISORDER
     Dosage: 150MG BEDTIME PO
     Route: 048
     Dates: start: 20060824, end: 20060825
  2. CLOZAPINE 150MG MYLAN [Suspect]
     Indication: SCHIZOAFFECTIVE DISORDER
     Dosage: 150MG BEDTIME PO
     Route: 048
     Dates: start: 20060824, end: 20060825
  3. RISPERIDONE [Concomitant]
  4. LITHIUM CARBONATE [Concomitant]
  5. PANTOPRAZOLE SODIUM [Concomitant]

REACTIONS (3)
  - GRAND MAL CONVULSION [None]
  - TREATMENT NONCOMPLIANCE [None]
  - VOMITING PROJECTILE [None]
